FAERS Safety Report 4888808-X (Version None)
Quarter: 2005Q4

REPORT INFORMATION
  Report Type: 
  Country: None (occurrence: None)
  Receive Date: 20051215
  Receipt Date: 20050627
  Transmission Date: 20060501
  Serious: Yes (Hospitalization, Other)
  Sender: FDA-Public Use
  Company Number: 2005087116

PATIENT
  Age: 40 Year
  Sex: Female
  Weight: 108.8633 kg

DRUGS (16)
  1. BEXTRA [Suspect]
     Indication: BACK PAIN
     Dosage: 10 MG (10 MG, 1 IN 1 D), ORAL
     Route: 048
     Dates: start: 20010101, end: 20041201
  2. METHADONE HCL [Suspect]
     Indication: PAIN
     Dosage: (5 MG, 1 D), ORAL
     Route: 048
     Dates: start: 20040101
  3. ALL OTHER THERAPEUTIC PRODUCTS (ALL OTHER THERAPEUTIC PRODUCTS) [Suspect]
     Indication: ILL-DEFINED DISORDER
  4. NEXIUM [Concomitant]
  5. PRILOSEC [Concomitant]
  6. LEVOXYL [Concomitant]
  7. ALLEGRA-D 12 HOUR [Concomitant]
  8. TRIAMTERENE (TRIAMTERENE) [Concomitant]
  9. ASPIRIN [Concomitant]
  10. FOLIC ACID [Concomitant]
  11. ASTELIN [Concomitant]
  12. RHINOCORT [Concomitant]
  13. PAXIL CR [Concomitant]
  14. DARVOCET-N 100 [Concomitant]
  15. SOMA [Concomitant]
  16. HYDROCHLOROTHIAZIDE [Concomitant]

REACTIONS (7)
  - ABDOMINAL PAIN [None]
  - CONSTIPATION [None]
  - DEEP VEIN THROMBOSIS [None]
  - HEPATIC FUNCTION ABNORMAL [None]
  - NAUSEA [None]
  - PAIN [None]
  - WEIGHT DECREASED [None]
